FAERS Safety Report 12358905 (Version 2)
Quarter: 2016Q2

REPORT INFORMATION
  Report Type: Spontaneous
  Country: US (occurrence: US)
  Receive Date: 20160512
  Receipt Date: 20160513
  Transmission Date: 20160815
  Serious: Yes (Other)
  Sender: FDA-Public Use
  Company Number: US-CIPLA LTD.-2016US04765

PATIENT

DRUGS (12)
  1. RALTEGRAVIR. [Suspect]
     Active Substance: RALTEGRAVIR
     Indication: ANTIRETROVIRAL THERAPY
     Dosage: UNK
     Route: 065
  2. TELAPREVIR [Suspect]
     Active Substance: TELAPREVIR
     Indication: ANTIVIRAL TREATMENT
     Dosage: UNK
     Route: 065
  3. BOCEPREVIR [Suspect]
     Active Substance: BOCEPREVIR
     Indication: ANTIVIRAL TREATMENT
     Dosage: UNK
     Route: 065
  4. RIBAVIRIN. [Suspect]
     Active Substance: RIBAVIRIN
     Indication: ANTIVIRAL TREATMENT
     Dosage: UNK, PRIOR THERAPY
     Route: 065
  5. TACROLIMUS. [Suspect]
     Active Substance: TACROLIMUS
     Indication: IMMUNOSUPPRESSANT DRUG THERAPY
     Dosage: UNK
     Route: 065
  6. ERYTHROPOIESIS-STIMULATING AGENT [Concomitant]
     Dosage: UNK
     Route: 065
  7. SOFOSBUVIR [Suspect]
     Active Substance: SOFOSBUVIR
     Indication: ANTIVIRAL TREATMENT
     Dosage: 400 MG, QD
     Route: 065
  8. TENOFOVIR [Suspect]
     Active Substance: TENOFOVIR
     Indication: ANTIRETROVIRAL THERAPY
     Dosage: UNK
     Route: 065
  9. PEGYLATED INTERFERON NOS [Suspect]
     Active Substance: PEGINTERFERON ALFA-2A OR PEGINTERFERON ALFA-2B OR PEGINTERFERON BETA-1A OR PEGINTERFERON LAMBDA-1A
     Indication: ANTIVIRAL TREATMENT
     Dosage: UNK
     Route: 065
  10. COLONY-STIMULATING AGENT [Concomitant]
     Dosage: UNK
     Route: 065
  11. RIBAVIRIN. [Suspect]
     Active Substance: RIBAVIRIN
     Dosage: UNK, RANGE OF 200-1200 MG, QD
     Route: 065
  12. CYCLOSPORIN [Suspect]
     Active Substance: CYCLOSPORINE
     Indication: IMMUNOSUPPRESSANT DRUG THERAPY
     Dosage: UNK
     Route: 065

REACTIONS (1)
  - Disease recurrence [Unknown]
